FAERS Safety Report 19332909 (Version 2)
Quarter: 2021Q2

REPORT INFORMATION
  Report Type: Report from Study
  Country: MX (occurrence: MX)
  Receive Date: 20210529
  Receipt Date: 20210613
  Transmission Date: 20210717
  Serious: Yes (Other)
  Sender: FDA-Public Use
  Company Number: NVSC2021MX120600

PATIENT
  Sex: Male
  Weight: 74 kg

DRUGS (6)
  1. RIBOTRIPSIN [Concomitant]
     Indication: PAIN
     Dosage: 1 DF, Q8H
     Route: 048
     Dates: start: 20210529
  2. GALVUS MET [Suspect]
     Active Substance: METFORMIN HYDROCHLORIDE\VILDAGLIPTIN
     Indication: DIABETES MELLITUS
     Dosage: 1 DF, BID (EVERY 12 HOURS)
     Route: 048
     Dates: start: 202103
  3. SOPHIPREN [Concomitant]
     Indication: POST PROCEDURAL COMPLICATION
     Dosage: 1 DF, Q2H IN LEFT EYE
     Route: 047
     Dates: start: 20210529
  4. ATROPINE. [Concomitant]
     Active Substance: ATROPINE
     Indication: PRODUCT USED FOR UNKNOWN INDICATION
     Dosage: 1 DF, Q8H IN LEFT EYE
     Route: 047
     Dates: start: 20210529
  5. AMLODIPINE [Concomitant]
     Active Substance: AMLODIPINE BESYLATE
     Indication: HYPERTENSION
     Dosage: 1 DF, BID (EVERY 12 HOURS)
     Route: 048
     Dates: start: 202011
  6. THEALOZ [Concomitant]
     Active Substance: TREHALOSE
     Indication: POST PROCEDURAL COMPLICATION
     Dosage: 1 DF, Q8H IN LEFT EYE
     Route: 047
     Dates: start: 20210529

REACTIONS (7)
  - Intraocular pressure increased [Recovered/Resolved]
  - Eye pain [Recovered/Resolved]
  - Vision blurred [Not Recovered/Not Resolved]
  - Neovascularisation [Unknown]
  - Headache [Recovered/Resolved]
  - Blindness unilateral [Unknown]
  - Malaise [Recovered/Resolved]
